FAERS Safety Report 7665941-0 (Version None)
Quarter: 2011Q3

REPORT INFORMATION
  Report Type: 
  Country: None (occurrence: None)
  Receive Date: 20110806
  Receipt Date: 20110622
  Transmission Date: 20111222
  Serious: No
  Sender: FDA-Public Use
  Company Number: US-ABBOTT-11P-163-0734457-00

PATIENT
  Sex: Male

DRUGS (5)
  1. NIASPAN [Suspect]
     Indication: BLOOD CHOLESTEROL INCREASED
     Dates: start: 20110401, end: 20110401
  2. NIASPAN [Suspect]
     Dates: start: 20110501, end: 20110501
  3. ASPIRIN [Concomitant]
     Indication: PROPHYLAXIS
  4. NIASPAN [Suspect]
     Dates: start: 20110601, end: 20110601
  5. ASPIRIN [Concomitant]
     Indication: FLUSHING

REACTIONS (2)
  - OCULAR HYPERAEMIA [None]
  - EYE PRURITUS [None]
